FAERS Safety Report 9373268 (Version 2)
Quarter: 2013Q3

REPORT INFORMATION
  Report Type: Spontaneous
  Country: CA (occurrence: CA)
  Receive Date: 20130627
  Receipt Date: 20130813
  Transmission Date: 20140515
  Serious: Yes (Hospitalization, Other)
  Sender: FDA-Public Use
  Company Number: CHPA2013CA010297

PATIENT
  Sex: Female

DRUGS (8)
  1. PRIVATE LABEL [Suspect]
     Indication: SMOKING CESSATION THERAPY
     Dosage: 14 MG, UNK
     Route: 062
     Dates: start: 201305, end: 20130622
  2. METOPROLOL [Concomitant]
     Dosage: 25 MG, BID
     Dates: start: 2013
  3. CRESTOR [Concomitant]
     Dosage: 30 MG, QD
     Dates: start: 2013
  4. NORVASC [Concomitant]
     Dosage: 2.5 MG, QD
     Dates: start: 2013
  5. BABY ASPIRIN [Concomitant]
     Dosage: UNK
     Route: 048
     Dates: start: 2013
  6. PLAVIX [Concomitant]
     Dosage: UNK, UNK
     Dates: start: 2013
  7. TECTA [Concomitant]
     Indication: GASTRIC DISORDER
     Dosage: 40 MG, QD
     Dates: start: 2013
  8. COLACE [Concomitant]
     Indication: FAECES HARD
     Dosage: 100 MG, QD
     Dates: start: 2013

REACTIONS (20)
  - Myocardial infarction [Recovered/Resolved]
  - Chronic lymphocytic leukaemia [Not Recovered/Not Resolved]
  - Pelvic mass [Not Recovered/Not Resolved]
  - Oedema peripheral [Recovered/Resolved]
  - Post procedural haematoma [Recovered/Resolved]
  - Post procedural haemorrhage [Recovered/Resolved]
  - Convulsion [Recovered/Resolved]
  - Urinary tract infection [Recovered/Resolved]
  - Anger [Not Recovered/Not Resolved]
  - Anxiety [Not Recovered/Not Resolved]
  - Fatigue [Not Recovered/Not Resolved]
  - Abdominal discomfort [Not Recovered/Not Resolved]
  - Constipation [Not Recovered/Not Resolved]
  - Formication [Not Recovered/Not Resolved]
  - Headache [Not Recovered/Not Resolved]
  - Insomnia [Not Recovered/Not Resolved]
  - Diarrhoea [Not Recovered/Not Resolved]
  - Dizziness [Not Recovered/Not Resolved]
  - Treatment noncompliance [Unknown]
  - Agitation [Not Recovered/Not Resolved]
